FAERS Safety Report 9612379 (Version 2)
Quarter: 2013Q4

REPORT INFORMATION
  Report Type: Spontaneous
  Country: IT (occurrence: IT)
  Receive Date: 20131010
  Receipt Date: 20131216
  Transmission Date: 20140711
  Serious: Yes (Hospitalization)
  Sender: FDA-Public Use
  Company Number: IT-PFIZER INC-2013288760

PATIENT
  Age: 64 Year
  Sex: Female

DRUGS (3)
  1. CARBOPLATIN [Suspect]
     Indication: BREAST CANCER
     Dosage: 130 MG, TOTAL DOSAGE
     Route: 042
     Dates: start: 20130924, end: 20130924
  2. ONDANSETRON HYDROCHLORIDE DIHYDRATE [Concomitant]
     Dosage: UNK
     Dates: start: 20130924, end: 20130924
  3. DEXAMETHASONE PHOSPHATE [Concomitant]
     Dosage: UNK
     Dates: start: 20130924, end: 20130924

REACTIONS (3)
  - Oral discomfort [Recovered/Resolved]
  - Syncope [Recovered/Resolved]
  - Off label use [Unknown]
